FAERS Safety Report 12272319 (Version 3)
Quarter: 2016Q2

REPORT INFORMATION
  Report Type: Report from Study
  Country: RU (occurrence: RU)
  Receive Date: 20160415
  Receipt Date: 20160521
  Transmission Date: 20160815
  Serious: Yes (Other)
  Sender: FDA-Public Use
  Company Number: RU-AMGEN-RUSCT2015131852

PATIENT
  Age: 27 Year
  Sex: Male

DRUGS (13)
  1. BLINATUMOMAB [Suspect]
     Active Substance: BLINATUMOMAB
     Indication: ACUTE LYMPHOCYTIC LEUKAEMIA REFRACTORY
     Dosage: 28 MUG, QD
     Route: 042
     Dates: start: 20151204
  2. CYCLOPHOSPHAN [Concomitant]
     Active Substance: CYCLOPHOSPHAMIDE
     Dosage: 2000 MG, UNK
     Dates: start: 20130531
  3. SUPRASTIN [Concomitant]
     Active Substance: CHLOROPYRAMINE HYDROCHLORIDE
     Dosage: 1 DOSE, QD
     Route: 042
     Dates: start: 20151224, end: 20151225
  4. ACYCLOVIR                          /00587301/ [Concomitant]
     Active Substance: ACYCLOVIR
     Dosage: 400 MG, BID
     Route: 048
     Dates: start: 20151204
  5. FLUCONAZOLUM                       /00512601/ [Concomitant]
     Dosage: 200 MG, QD
     Route: 042
     Dates: start: 20151204
  6. IDARUBICIN [Concomitant]
     Active Substance: IDARUBICIN
     Dosage: 12 MG, UNK
     Dates: start: 20130806
  7. BISEPTOL [Concomitant]
     Active Substance: SULFAMETHOXAZOLE\TRIMETHOPRIM
     Dosage: 960 MG, QWK
     Route: 048
     Dates: start: 20151204
  8. PREDNISOLON                        /00016201/ [Concomitant]
     Active Substance: PREDNISOLONE
     Dosage: 120 MG, QD
     Dates: start: 20130412
  9. ONCASPAR [Concomitant]
     Active Substance: PEGASPARGASE
     Dosage: UNK
     Dates: start: 20130420
  10. METHOTREXATE [Concomitant]
     Active Substance: METHOTREXATE
     Dosage: 15 MG, UNK
     Route: 037
     Dates: start: 20121103
  11. CYTOSAR [Concomitant]
     Active Substance: CYTARABINE
     Dosage: 40 MG, UNK
     Route: 037
     Dates: start: 20131103
  12. DAUNORUBICINUM [Concomitant]
     Dosage: 45 MG/M2, UNK
     Dates: start: 20130420
  13. VINCRISTINE [Concomitant]
     Active Substance: VINCRISTINE
     Dosage: 2 MG, UNK
     Dates: start: 20130412

REACTIONS (7)
  - Bronchospasm [Recovered/Resolved]
  - Vomiting [Recovered/Resolved]
  - Seizure [Recovered/Resolved]
  - Pruritus [Recovered/Resolved]
  - Hepatic enzyme increased [Not Recovered/Not Resolved]
  - Nausea [Recovered/Resolved]
  - Pyrexia [Unknown]

NARRATIVE: CASE EVENT DATE: 20151205
